FAERS Safety Report 14599708 (Version 1)
Quarter: 2018Q1

REPORT INFORMATION
  Report Type: Spontaneous
  Country: US (occurrence: US)
  Receive Date: 20180305
  Receipt Date: 20180305
  Transmission Date: 20180509
  Serious: Yes (Other)
  Sender: FDA-Public Use
  Company Number: US-TEVA-2018-US-864541

PATIENT
  Age: 76 Year
  Sex: Male

DRUGS (2)
  1. CYTARABINE. [Suspect]
     Active Substance: CYTARABINE
     Indication: ACUTE MYELOID LEUKAEMIA
     Dosage: 0.375 G/ME2 FOR 3 DAYS; COMPLETED TWO CYCLES.
     Route: 065
  2. FLUDARABINE [Suspect]
     Active Substance: FLUDARABINE PHOSPHATE
     Indication: ACUTE MYELOID LEUKAEMIA
     Dosage: FOR 3 DAYS; COMPLETED TWO CYCLES.
     Route: 065

REACTIONS (2)
  - Febrile neutropenia [Unknown]
  - Urinary tract infection pseudomonal [Unknown]
